FAERS Safety Report 9404146 (Version 2)
Quarter: 2013Q3

REPORT INFORMATION
  Report Type: Spontaneous
  Country: US (occurrence: US)
  Receive Date: 20130717
  Receipt Date: 20130730
  Transmission Date: 20140515
  Serious: Yes (Other)
  Sender: FDA-Public Use
  Company Number: US-ROCHE-1248650

PATIENT
  Age: 54 Year
  Sex: Female
  Weight: 76.6 kg

DRUGS (5)
  1. HERCEPTIN [Suspect]
     Indication: BREAST CANCER
     Route: 042
  2. DOCETAXEL [Suspect]
     Indication: PRODUCT USED FOR UNKNOWN INDICATION
     Route: 042
  3. TAXOTERE [Concomitant]
     Indication: BREAST CANCER
  4. CARBOPLATIN [Concomitant]
     Indication: BREAST CANCER
     Route: 042
  5. ZOFRAN [Concomitant]
     Indication: NAUSEA
     Route: 048

REACTIONS (1)
  - Tricuspid valve incompetence [Recovering/Resolving]
